FAERS Safety Report 16215122 (Version 1)
Quarter: 2019Q2

REPORT INFORMATION
  Report Type: Spontaneous
  Country: US (occurrence: US)
  Receive Date: 20190418
  Receipt Date: 20190418
  Transmission Date: 20190711
  Serious: Yes (Other)
  Sender: FDA-Public Use
  Company Number: None

PATIENT
  Age: 34 Year
  Sex: Female
  Weight: 87.75 kg

DRUGS (1)
  1. XARELTO [Suspect]
     Active Substance: RIVAROXABAN
     Indication: PULMONARY EMBOLISM
     Dosage: ?          QUANTITY:1 TABLET(S);?
     Route: 048
     Dates: start: 20190212

REACTIONS (9)
  - Paraesthesia [None]
  - Neuralgia [None]
  - Muscular weakness [None]
  - Tenderness [None]
  - Gingival pain [None]
  - Musculoskeletal pain [None]
  - Pain of skin [None]
  - Back pain [None]
  - Limb discomfort [None]

NARRATIVE: CASE EVENT DATE: 20190417
